APPROVED DRUG PRODUCT: BETAMETHASONE DIPROPIONATE
Active Ingredient: BETAMETHASONE DIPROPIONATE
Strength: EQ 0.05% BASE
Dosage Form/Route: OINTMENT, AUGMENTED;TOPICAL
Application: A206118 | Product #001
Applicant: PADAGIS US LLC
Approved: Nov 9, 2017 | RLD: No | RS: No | Type: DISCN